FAERS Safety Report 8815382 (Version 2)
Quarter: 2012Q4

REPORT INFORMATION
  Report Type: 
  Country: FR (occurrence: FR)
  Receive Date: 20120928
  Receipt Date: 20121015
  Transmission Date: 20130627
  Serious: Yes (Death, Hospitalization, Other)
  Sender: FDA-Public Use
  Company Number: FR-ASTRAZENECA-2012SE74213

PATIENT
  Age: 89 Year
  Sex: Male

DRUGS (9)
  1. CASODEX [Suspect]
     Indication: PROSTATE CANCER
     Route: 048
     Dates: end: 20120814
  2. ZESTRIL [Suspect]
     Route: 048
     Dates: end: 20120816
  3. TAHOR [Suspect]
     Route: 048
     Dates: end: 20120816
  4. EZETROL [Suspect]
     Route: 048
     Dates: end: 20120816
  5. PREVISCAN [Suspect]
     Route: 048
     Dates: end: 20120816
  6. FUROSEMID [Suspect]
     Route: 048
  7. PROTHIADEN [Suspect]
     Route: 048
     Dates: end: 20120816
  8. INEXIUM [Concomitant]
  9. ATARAX [Concomitant]

REACTIONS (3)
  - Intra-abdominal haematoma [Unknown]
  - Multi-organ failure [Fatal]
  - Hepatitis [Fatal]
